FAERS Safety Report 8104730 (Version 2)
Quarter: 2012Q4

REPORT INFORMATION
  Report Type: 
  Country: US (occurrence: US)
  Receive Date: 20110824
  Receipt Date: 20121010
  Transmission Date: 20130627
  Serious: Yes (Hospitalization)
  Sender: FDA-Public Use
  Company Number: US-ASTRAZENECA-2009UW10132

PATIENT
  Age: 60 Year
  Sex: Female

DRUGS (6)
  1. PULMICORT [Suspect]
     Route: 055
  2. PULMICORT [Suspect]
     Route: 055
  3. PULMICORT [Suspect]
     Route: 055
  4. ALBUTEROL [Concomitant]
  5. IPATROPIUM BROMIDE [Concomitant]
  6. LOVENEX [Concomitant]

REACTIONS (6)
  - Joint swelling [Unknown]
  - Asthma [Unknown]
  - Chronic obstructive pulmonary disease [Unknown]
  - Anaemia [Unknown]
  - Off label use [Unknown]
  - Circumstance or information capable of leading to medication error [Unknown]
